FAERS Safety Report 9665699 (Version 1)
Quarter: 2013Q4

REPORT INFORMATION
  Report Type: Spontaneous
  Country: JP (occurrence: JP)
  Receive Date: 20131104
  Receipt Date: 20131104
  Transmission Date: 20140711
  Serious: Yes (Other)
  Sender: FDA-Public Use
  Company Number: PHHY2013JP122973

PATIENT
  Age: 63 Year
  Sex: Male

DRUGS (5)
  1. EVEROLIMUS [Suspect]
     Indication: RENAL CELL CARCINOMA
     Dosage: 10 MG, QD
  2. EVEROLIMUS [Suspect]
     Dosage: 10 MG, QD
  3. NSAID^S [Concomitant]
  4. OXYCODONE [Concomitant]
  5. RADIATION THERAPY [Concomitant]
     Indication: BACK PAIN

REACTIONS (4)
  - Erosive oesophagitis [Recovering/Resolving]
  - Vomiting [Recovering/Resolving]
  - Nausea [Recovering/Resolving]
  - Dysphagia [Recovering/Resolving]
